FAERS Safety Report 8879819 (Version 2)
Quarter: 2013Q1

REPORT INFORMATION
  Report Type: Spontaneous
  Country: US (occurrence: US)
  Receive Date: 20121031
  Receipt Date: 20130122
  Transmission Date: 20140127
  Serious: No
  Sender: FDA-Public Use
  Company Number: US-009507513-1210USA004183

PATIENT
  Age: 54 None
  Sex: Female

DRUGS (2)
  1. PROVENTIL [Suspect]
     Indication: WHEEZING
     Dosage: 1 STANDARD DOSE OF 6.7, 2 PUFF Q4H PRN
     Route: 055
  2. SYMBICORT [Concomitant]

REACTIONS (3)
  - Wheezing [Unknown]
  - Drug dose omission [Unknown]
  - Product quality issue [Unknown]
